FAERS Safety Report 16128743 (Version 2)
Quarter: 2019Q2

REPORT INFORMATION
  Report Type: Not Available
  Country: US (occurrence: US)
  Receive Date: 20190328
  Receipt Date: 20190415
  Transmission Date: 20190711
  Serious: Yes (Hospitalization)
  Sender: FDA-Public Use
  Company Number: US-NEUROCRINE BIOSCIENCES INC.-2019NBI00715

PATIENT
  Sex: Female

DRUGS (1)
  1. INGREZZA [Suspect]
     Active Substance: VALBENAZINE
     Indication: TARDIVE DYSKINESIA
     Route: 048
     Dates: start: 20180529

REACTIONS (5)
  - Blood glucose decreased [Unknown]
  - Anger [Unknown]
  - Malaise [Unknown]
  - Mental disorder [Unknown]
  - Diabetes mellitus inadequate control [Unknown]
